FAERS Safety Report 11230595 (Version 1)
Quarter: 2015Q2

REPORT INFORMATION
  Report Type: Spontaneous
  Country: US (occurrence: None)
  Receive Date: 20150629
  Receipt Date: 20150629
  Transmission Date: 20150821
  Serious: Yes (Disabling)
  Sender: FDA-Public Use
  Company Number: None

PATIENT
  Age: 60 Year
  Sex: Female
  Weight: 44.45 kg

DRUGS (3)
  1. ZOLPIDEM [Concomitant]
     Active Substance: ZOLPIDEM\ZOLPIDEM TARTRATE
  2. VYTORIN [Concomitant]
     Active Substance: EZETIMIBE\SIMVASTATIN
  3. LEVOXYL [Suspect]
     Active Substance: LEVOTHYROXINE SODIUM
     Indication: HYPOTHYROIDISM
     Dosage: 125 UG 1/2 PILL ONCE A DAY BY MOUTH
     Route: 048
     Dates: start: 20150612

REACTIONS (13)
  - Musculoskeletal stiffness [None]
  - Lethargy [None]
  - Nausea [None]
  - Product quality issue [None]
  - Tongue coated [None]
  - Weight decreased [None]
  - Joint stiffness [None]
  - Throat irritation [None]
  - Glossodynia [None]
  - Dyspepsia [None]
  - Tongue dry [None]
  - Osteoporosis [None]
  - Balance disorder [None]

NARRATIVE: CASE EVENT DATE: 20150612
